FAERS Safety Report 6986017-1 (Version None)
Quarter: 2010Q3

REPORT INFORMATION
  Report Type: 
  Country: None (occurrence: None)
  Receive Date: 20100915
  Receipt Date: 20100908
  Transmission Date: 20110219
  Serious: Yes (Hospitalization)
  Sender: FDA-Public Use
  Company Number: FR-ABBOTT-10P-056-0668544-00

PATIENT
  Sex: Female

DRUGS (1)
  1. ENANTONE LP 11.25 MG [Suspect]
     Indication: ENDOMETRIOSIS
     Route: 042
     Dates: start: 20100828

REACTIONS (3)
  - BRADYCARDIA [None]
  - HOT FLUSH [None]
  - INCORRECT ROUTE OF DRUG ADMINISTRATION [None]
